FAERS Safety Report 6199664-4 (Version None)
Quarter: 2009Q2

REPORT INFORMATION
  Report Type: 
  Country: None (occurrence: None)
  Receive Date: 20090522
  Receipt Date: 20090520
  Transmission Date: 20091009
  Serious: Yes (Death)
  Sender: FDA-Public Use
  Company Number: JP-AVENTIS-200911401JP

PATIENT
  Age: 68 Year
  Sex: Male

DRUGS (4)
  1. TAXOTERE [Suspect]
     Route: 041
     Dates: start: 20081212, end: 20090201
  2. DEXAMETHASONE 4MG TAB [Concomitant]
     Route: 048
  3. ESTRACYT                           /00327002/ [Concomitant]
  4. LOXOPROFEN [Concomitant]

REACTIONS (1)
  - INTERSTITIAL LUNG DISEASE [None]
